FAERS Safety Report 10438474 (Version 1)
Quarter: 2014Q3

REPORT INFORMATION
  Report Type: Report from Study
  Country: RU (occurrence: RU)
  Receive Date: 20140908
  Receipt Date: 20140908
  Transmission Date: 20150326
  Serious: Yes (Hospitalization)
  Sender: FDA-Public Use
  Company Number: RU-GLAXOSMITHKLINE-B1029956A

PATIENT
  Age: 56 Year
  Sex: Male

DRUGS (10)
  1. OMEGA-3-ACID ETHYL ESTERS. [Suspect]
     Active Substance: OMEGA-3-ACID ETHYL ESTERS
     Indication: MYOCARDIAL INFARCTION
     Dosage: 1000MG PER DAY
     Route: 048
     Dates: start: 20130812
  2. ACETYLSALICYLIC ACID [Concomitant]
     Active Substance: ASPIRIN
     Indication: MYOCARDIAL INFARCTION
     Dosage: 100MG PER DAY
     Route: 048
     Dates: start: 20130519
  3. CEFUROXIME. [Concomitant]
     Active Substance: CEFUROXIME
     Indication: ANTIBIOTIC PROPHYLAXIS
     Route: 051
     Dates: start: 20130519
  4. ATORVASTATIN [Concomitant]
     Active Substance: ATORVASTATIN
     Indication: CORONARY ARTERY DISEASE
     Dosage: 20MG PER DAY
     Route: 048
     Dates: start: 20130605
  5. AMLODIPINE BESILATE + VALSARTAN [Concomitant]
     Indication: MYOCARDIAL INFARCTION
     Route: 048
  6. DICLOFENAC [Concomitant]
     Active Substance: DICLOFENAC
     Route: 030
  7. CLOPIDOGREL [Concomitant]
     Active Substance: CLOPIDOGREL BISULFATE
     Indication: MYOCARDIAL INFARCTION
     Dosage: 75MG PER DAY
     Route: 048
  8. DETRALEX [Concomitant]
     Active Substance: DIOSMIN\HESPERIDIN
     Indication: WOUND
     Dosage: 1000MG PER DAY
     Route: 048
  9. BISOPROLOL [Concomitant]
     Active Substance: BISOPROLOL
     Indication: MYOCARDIAL INFARCTION
     Dosage: 5MG PER DAY
     Route: 048
  10. CEFUROXIME. [Concomitant]
     Active Substance: CEFUROXIME
     Indication: PROPHYLAXIS
     Route: 042
     Dates: start: 20130522

REACTIONS (2)
  - Aortic arteriosclerosis [Recovered/Resolved with Sequelae]
  - Brachiocephalic artery occlusion [Recovered/Resolved with Sequelae]

NARRATIVE: CASE EVENT DATE: 20140128
